FAERS Safety Report 7647805-1 (Version None)
Quarter: 2011Q3

REPORT INFORMATION
  Report Type: 
  Country: None (occurrence: None)
  Receive Date: 20110801
  Receipt Date: 20110720
  Transmission Date: 20111222
  Serious: Yes (Death, Hospitalization)
  Sender: FDA-Public Use
  Company Number: FR-MERCK-1107USA03073

PATIENT
  Age: 89 Year
  Sex: Female
  Weight: 70 kg

DRUGS (5)
  1. MORPHINE [Concomitant]
     Route: 065
  2. LYRICA [Concomitant]
     Route: 065
  3. ZYVOX [Suspect]
     Indication: PERIPHERAL ISCHAEMIA
     Route: 041
     Dates: start: 20110427, end: 20110509
  4. NEXIUM [Concomitant]
     Route: 065
  5. PRIMAXIN [Suspect]
     Indication: PERIPHERAL ISCHAEMIA
     Route: 041
     Dates: start: 20110427, end: 20110509

REACTIONS (2)
  - THROMBOCYTOPENIA [None]
  - HAEMOGLOBIN DECREASED [None]
